FAERS Safety Report 11302685 (Version 5)
Quarter: 2015Q4

REPORT INFORMATION
  Report Type: Spontaneous
  Country: US (occurrence: US)
  Receive Date: 20150723
  Receipt Date: 20151104
  Transmission Date: 20160304
  Serious: Yes (Hospitalization)
  Sender: FDA-Public Use
  Company Number: US-JNJFOC-20150708309

PATIENT
  Age: 85 Year
  Sex: Female

DRUGS (12)
  1. XARELTO [Suspect]
     Active Substance: RIVAROXABAN
     Indication: DEEP VEIN THROMBOSIS
     Route: 065
     Dates: end: 2015
  2. LOPERAMIDE [Concomitant]
     Active Substance: LOPERAMIDE
  3. IMBRUVICA [Suspect]
     Active Substance: IBRUTINIB
     Indication: CHRONIC LYMPHOCYTIC LEUKAEMIA
     Route: 048
     Dates: start: 20150604, end: 20150701
  4. COREG [Concomitant]
     Active Substance: CARVEDILOL
  5. IMBRUVICA [Suspect]
     Active Substance: IBRUTINIB
     Indication: CHRONIC LYMPHOCYTIC LEUKAEMIA
     Route: 048
     Dates: start: 2015
  6. DIGOXIN. [Concomitant]
     Active Substance: DIGOXIN
  7. LASIX [Concomitant]
     Active Substance: FUROSEMIDE
  8. IMBRUVICA [Suspect]
     Active Substance: IBRUTINIB
     Indication: CHRONIC LYMPHOCYTIC LEUKAEMIA
     Route: 048
     Dates: start: 20150704
  9. DOXYCYCLINE HYCLATE. [Concomitant]
     Active Substance: DOXYCYCLINE HYCLATE
  10. NORCO [Concomitant]
     Active Substance: ACETAMINOPHEN\HYDROCODONE BITARTRATE
  11. POTASSIUM CHLORIDE. [Concomitant]
     Active Substance: POTASSIUM CHLORIDE
  12. BABY ASPIRIN [Concomitant]
     Active Substance: ASPIRIN
     Indication: HYPERTENSION

REACTIONS (8)
  - Haemorrhage intracranial [Recovered/Resolved]
  - Aphasia [Unknown]
  - Swelling [Recovering/Resolving]
  - Incorrect dose administered [Not Recovered/Not Resolved]
  - Nausea [Recovered/Resolved]
  - Fall [Unknown]
  - Fatigue [Recovering/Resolving]
  - Subarachnoid haemorrhage [Unknown]

NARRATIVE: CASE EVENT DATE: 2015
